FAERS Safety Report 10052407 (Version 1)
Quarter: 2014Q2

REPORT INFORMATION
  Report Type: Spontaneous
  Country: US (occurrence: US)
  Receive Date: 20140402
  Receipt Date: 20140402
  Transmission Date: 20141212
  Serious: Yes (Other)
  Sender: FDA-Public Use
  Company Number: US-TEVA-472168USA

PATIENT
  Sex: Female

DRUGS (1)
  1. OXYBUTYNIN [Suspect]

REACTIONS (3)
  - Dementia Alzheimer^s type [Unknown]
  - Urinary retention [Unknown]
  - Urine odour abnormal [Unknown]
